FAERS Safety Report 16976602 (Version 2)
Quarter: 2019Q4

REPORT INFORMATION
  Report Type: Spontaneous
  Country: US (occurrence: US)
  Receive Date: 20191030
  Receipt Date: 20191112
  Transmission Date: 20200122
  Serious: Yes (Hospitalization)
  Sender: FDA-Public Use
  Company Number: US-GUERBET-US-20190248

PATIENT
  Age: 79 Year
  Sex: Male

DRUGS (1)
  1. LIPIODOL [Suspect]
     Active Substance: ETHIODIZED OIL
     Indication: LYMPHANGIOGRAM
     Route: 065

REACTIONS (4)
  - Hypoxia [Unknown]
  - Mental disorder [Unknown]
  - Pulmonary embolism [Unknown]
  - Cerebral infarction [Unknown]
